FAERS Safety Report 17469177 (Version 2)
Quarter: 2020Q2

REPORT INFORMATION
  Report Type: Spontaneous
  Country: US (occurrence: US)
  Receive Date: 20200227
  Receipt Date: 20200410
  Transmission Date: 20200713
  Serious: No
  Sender: FDA-Public Use
  Company Number: US-SA-2020SA047807

PATIENT
  Age: 44 Year
  Sex: Female
  Weight: 146.5 kg

DRUGS (26)
  1. ADVIL [IBUPROFEN] [Concomitant]
     Active Substance: IBUPROFEN
  2. DIPHENHYDRAMINE. [Concomitant]
     Active Substance: DIPHENHYDRAMINE
  3. ALBUTEROL [SALBUTAMOL] [Concomitant]
     Active Substance: ALBUTEROL
  4. IRON [Concomitant]
     Active Substance: IRON
  5. OZEMPIC [Concomitant]
     Active Substance: SEMAGLUTIDE
  6. ZOFRAN [Concomitant]
     Active Substance: ONDANSETRON HYDROCHLORIDE
  7. LISINOPRIL. [Concomitant]
     Active Substance: LISINOPRIL
  8. GLIMEPIRIDE. [Concomitant]
     Active Substance: GLIMEPIRIDE
  9. LEVOTHYROXINE. [Concomitant]
     Active Substance: LEVOTHYROXINE
  10. ACETAMINOPHEN. [Concomitant]
     Active Substance: ACETAMINOPHEN
  11. JANUVIA [Concomitant]
     Active Substance: SITAGLIPTIN PHOSPHATE
  12. SINGULAIR [Concomitant]
     Active Substance: MONTELUKAST SODIUM
  13. CARBAMAZEPINE. [Concomitant]
     Active Substance: CARBAMAZEPINE
  14. METFORMIN [METFORMIN HYDROCHLORIDE] [Concomitant]
     Active Substance: METFORMIN HYDROCHLORIDE
  15. FABRAZYME [Suspect]
     Active Substance: AGALSIDASE BETA
     Indication: FABRY^S DISEASE
     Dosage: 1.09 MG/KG, QOW
     Route: 042
     Dates: start: 20190411
  16. BACLOFEN. [Concomitant]
     Active Substance: BACLOFEN
  17. ASPIRIN [ACETYLSALICYLIC ACID] [Concomitant]
     Active Substance: ASPIRIN
  18. NORCO [Concomitant]
     Active Substance: ACETAMINOPHEN\HYDROCODONE BITARTRATE
  19. KEFLEX [Concomitant]
     Active Substance: CEPHALEXIN
  20. ADVAIR HFA [Concomitant]
     Active Substance: FLUTICASONE PROPIONATE\SALMETEROL XINAFOATE
  21. ALLOPURINOL. [Concomitant]
     Active Substance: ALLOPURINOL
  22. VITAMIN D3 [Concomitant]
     Active Substance: CHOLECALCIFEROL
  23. MEDROXYPROGESTERONE [Concomitant]
     Active Substance: MEDROXYPROGESTERONE
  24. EPINEPHRINE. [Concomitant]
     Active Substance: EPINEPHRINE
  25. NORMAL SALINE [Concomitant]
     Active Substance: SODIUM CHLORIDE
  26. WATER FOR INJECTION [Concomitant]
     Active Substance: WATER

REACTIONS (6)
  - Blister [Unknown]
  - Uterine dilation and curettage [Unknown]
  - Endometrial ablation [Unknown]
  - Pain in extremity [Unknown]
  - Poor venous access [Unknown]
  - Sunburn [Unknown]

NARRATIVE: CASE EVENT DATE: 202002
